FAERS Safety Report 8840030 (Version 1)
Quarter: 2012Q4

REPORT INFORMATION
  Report Type: 
  Country: US (occurrence: US)
  Receive Date: 20121015
  Receipt Date: 20121015
  Transmission Date: 20130627
  Serious: No
  Sender: FDA-Public Use
  Company Number: US-PFIZER INC-2012252329

PATIENT
  Age: 75 Year

DRUGS (2)
  1. METHOTREXATE SODIUM [Suspect]
     Dosage: UNK
  2. METHOTREXATE SODIUM [Suspect]
     Dosage: UNK, 1 time a week

REACTIONS (5)
  - Drug hypersensitivity [Unknown]
  - Nausea [Unknown]
  - Headache [Unknown]
  - Dizziness [Unknown]
  - Herpes zoster [Unknown]
